FAERS Safety Report 5228683-7 (Version None)
Quarter: 2007Q1

REPORT INFORMATION
  Report Type: 
  Country: None (occurrence: None)
  Receive Date: 20070205
  Receipt Date: 20070130
  Transmission Date: 20070707
  Serious: Yes (Congenital Anomaly)
  Sender: FDA-Public Use
  Company Number: SE-GLAXOSMITHKLINE-B0456878A

PATIENT
  Sex: Female

DRUGS (1)
  1. LAMICTAL [Suspect]
     Indication: EPILEPSY
     Dosage: 500MG PER DAY

REACTIONS (2)
  - CONGENITAL HEPATOBILIARY ANOMALY [None]
  - DRUG EXPOSURE DURING PREGNANCY [None]
